FAERS Safety Report 12845751 (Version 2)
Quarter: 2016Q4

REPORT INFORMATION
  Report Type: Report from Study
  Country: RU (occurrence: RU)
  Receive Date: 20161013
  Receipt Date: 20161205
  Transmission Date: 20170207
  Serious: Yes (Hospitalization)
  Sender: FDA-Public Use
  Company Number: RU-B.I. PHARMACEUTICALS,INC./RIDGEFIELD-2016-BI-31178BI

PATIENT
  Age: 61 Year
  Sex: Male
  Weight: 72 kg

DRUGS (1)
  1. BLINDED TIOTROPIUM BROMIDE+OLODATEROL [Suspect]
     Active Substance: OLODATEROL HYDROCHLORIDE\TIOTROPIUM BROMIDE MONOHYDRATE
     Indication: CHRONIC OBSTRUCTIVE PULMONARY DISEASE
     Route: 048
     Dates: start: 20160314

REACTIONS (6)
  - Atrial fibrillation [Recovered/Resolved]
  - Arteriosclerosis [Not Recovered/Not Resolved]
  - Encephalopathy [Not Recovered/Not Resolved]
  - Cardiac failure chronic [Not Recovered/Not Resolved]
  - Heart valve calcification [Not Recovered/Not Resolved]
  - Arrhythmia [Recovered/Resolved]

NARRATIVE: CASE EVENT DATE: 20160411
